FAERS Safety Report 24739373 (Version 1)
Quarter: 2024Q4

REPORT INFORMATION
  Report Type: Spontaneous
  Country: US (occurrence: US)
  Receive Date: 20241216
  Receipt Date: 20241216
  Transmission Date: 20250115
  Serious: Yes (Other)
  Sender: GE HEALTHCARE
  Company Number: US-GE HEALTHCARE-2024CSU014404

PATIENT
  Sex: Male

DRUGS (1)
  1. CLARISCAN [Suspect]
     Active Substance: GADOTERATE MEGLUMINE
     Indication: Magnetic resonance imaging
     Dosage: 10 ML, TOTAL
     Route: 042
     Dates: start: 20241209, end: 20241209

REACTIONS (5)
  - Loss of consciousness [Recovered/Resolved]
  - Sneezing [Recovered/Resolved]
  - Pallor [Recovered/Resolved]
  - Erythema [Recovered/Resolved]
  - Heart rate increased [Recovered/Resolved]

NARRATIVE: CASE EVENT DATE: 20241209
